FAERS Safety Report 10602238 (Version 3)
Quarter: 2015Q3

REPORT INFORMATION
  Report Type: Report from Study
  Country: US (occurrence: US)
  Receive Date: 20141124
  Receipt Date: 20150818
  Transmission Date: 20151125
  Serious: No
  Sender: FDA-Public Use
  Company Number: US-GILEAD-2014-0123576

PATIENT
  Age: 64 Year
  Sex: Female

DRUGS (24)
  1. LANTUS [Concomitant]
     Active Substance: INSULIN GLARGINE
  2. VITAMINS NOS [Concomitant]
     Active Substance: VITAMINS
  3. TYVASO [Suspect]
     Active Substance: TREPROSTINIL
     Indication: PRODUCT USED FOR UNKNOWN INDICATION
     Route: 065
  4. IRON [Concomitant]
     Active Substance: IRON
  5. TYLENOL [Concomitant]
     Active Substance: ACETAMINOPHEN
  6. LIPITOR [Concomitant]
     Active Substance: ATORVASTATIN CALCIUM
  7. CLARITIN [Concomitant]
     Active Substance: LORATADINE
  8. PRESERVISION AREDS [Concomitant]
     Active Substance: MINERALS\VITAMINS
  9. ASPIRIN                            /00002701/ [Concomitant]
     Active Substance: ASPIRIN
  10. NEXIUM [Concomitant]
     Active Substance: ESOMEPRAZOLE MAGNESIUM
  11. VITAMIN B12 [Concomitant]
     Active Substance: CYANOCOBALAMIN
  12. DIGOXIN. [Concomitant]
     Active Substance: DIGOXIN
  13. ALDACTONE [Concomitant]
     Active Substance: SPIRONOLACTONE
  14. MUCINEX D [Concomitant]
     Active Substance: GUAIFENESIN\PSEUDOEPHEDRINE HYDROCHLORIDE
  15. ZANTAC [Concomitant]
     Active Substance: RANITIDINE HYDROCHLORIDE
  16. SOMA [Concomitant]
     Active Substance: CARISOPRODOL
  17. AMBRISENTAN [Suspect]
     Active Substance: AMBRISENTAN
     Indication: PULMONARY ARTERIAL HYPERTENSION
     Dosage: 10 MG, QD
     Route: 065
     Dates: start: 20100921
  18. REVATIO [Suspect]
     Active Substance: SILDENAFIL CITRATE
     Indication: PRODUCT USED FOR UNKNOWN INDICATION
     Route: 065
  19. LUTEIN                             /01638501/ [Concomitant]
     Active Substance: LUTEIN
  20. NORCO [Concomitant]
     Active Substance: ACETAMINOPHEN\HYDROCODONE BITARTRATE
  21. CALCIUM D3                         /00944201/ [Concomitant]
     Active Substance: CALCIUM\CHOLECALCIFEROL
  22. ATIVAN [Concomitant]
     Active Substance: LORAZEPAM
  23. XANAX [Concomitant]
     Active Substance: ALPRAZOLAM
  24. HYZAAR [Concomitant]
     Active Substance: HYDROCHLOROTHIAZIDE\LOSARTAN POTASSIUM

REACTIONS (5)
  - Visual impairment [Not Recovered/Not Resolved]
  - Vision blurred [Unknown]
  - Dry eye [Unknown]
  - Headache [Unknown]
  - Photosensitivity reaction [Unknown]

NARRATIVE: CASE EVENT DATE: 20141112
